FAERS Safety Report 6740277-0 (Version None)
Quarter: 2010Q2

REPORT INFORMATION
  Report Type: 
  Country: None (occurrence: None)
  Receive Date: 20100525
  Receipt Date: 20100520
  Transmission Date: 20101027
  Serious: Yes (Disabling, Other)
  Sender: FDA-Public Use
  Company Number: US-MERCK-0911USA04327

PATIENT
  Sex: Female
  Weight: 49 kg

DRUGS (2)
  1. FOSAMAX [Suspect]
     Indication: OSTEOPOROSIS
     Route: 048
     Dates: start: 20000101, end: 20080901
  2. FOSAMAX [Suspect]
     Route: 048
     Dates: start: 20010416, end: 20090101

REACTIONS (11)
  - CEREBRAL ATROPHY [None]
  - DEAFNESS NEUROSENSORY [None]
  - DENTAL CARIES [None]
  - FISTULA [None]
  - HEADACHE [None]
  - NASAL CONGESTION [None]
  - NASAL SEPTUM DEVIATION [None]
  - OSTEONECROSIS OF JAW [None]
  - PERIODONTAL DISEASE [None]
  - SINUS HEADACHE [None]
  - TOOTH FRACTURE [None]
